FAERS Safety Report 25306971 (Version 2)
Quarter: 2025Q3

REPORT INFORMATION
  Report Type: Spontaneous
  Country: GB (occurrence: GB)
  Receive Date: 20250513
  Receipt Date: 20250809
  Transmission Date: 20251020
  Serious: Yes (Other)
  Sender: ALEXION PHARMACEUTICALS
  Company Number: GB-ASTRAZENECA-202505GLO003704GB

PATIENT
  Age: 60 Year
  Sex: Female

DRUGS (1)
  1. GEFITINIB [Suspect]
     Active Substance: GEFITINIB
     Indication: Non-small cell lung cancer
     Route: 065

REACTIONS (4)
  - Malignant neoplasm progression [Unknown]
  - Malignant transformation [Unknown]
  - Metastases to liver [Unknown]
  - Drug resistance [Unknown]
